FAERS Safety Report 23538116 (Version 2)
Quarter: 2024Q1

REPORT INFORMATION
  Report Type: Spontaneous
  Country: US (occurrence: US)
  Receive Date: 20240219
  Receipt Date: 20240316
  Transmission Date: 20240410
  Serious: Yes (Other)
  Sender: FDA-Public Use
  Company Number: US-MACLEODS PHARMACEUTICALS US LTD-MAC2024045900

PATIENT

DRUGS (9)
  1. LEVOTHYROXINE [Suspect]
     Active Substance: LEVOTHYROXINE\LEVOTHYROXINE SODIUM
     Indication: Huerthle cell carcinoma
     Dosage: 200 MICROGRAM, QD
     Route: 065
  2. LEVOTHYROXINE [Suspect]
     Active Substance: LEVOTHYROXINE\LEVOTHYROXINE SODIUM
     Dosage: 137 MICROGRAM, QD
     Route: 065
  3. LEVOTHYROXINE [Suspect]
     Active Substance: LEVOTHYROXINE\LEVOTHYROXINE SODIUM
     Dosage: 125 MICROGRAM, QD
     Route: 065
  4. CALCITRIOL [Concomitant]
     Active Substance: CALCITRIOL
     Indication: Product used for unknown indication
     Dosage: UNK
     Route: 065
  5. LENVATINIB [Concomitant]
     Active Substance: LENVATINIB
     Indication: Huerthle cell carcinoma
     Dosage: 24 MILLIGRAM, QD
     Route: 065
  6. CABOZANTINIB [Concomitant]
     Active Substance: CABOZANTINIB
     Indication: Huerthle cell carcinoma
     Dosage: UNK
     Route: 065
  7. PAZOPANIB [Concomitant]
     Active Substance: PAZOPANIB
     Indication: Huerthle cell carcinoma
     Dosage: 600 MILLIGRAM, QD
     Route: 065
  8. IODINE [Concomitant]
     Active Substance: IODINE
     Indication: Huerthle cell carcinoma
     Dosage: UNK (141 MCI OF RADIOACTIVE IODINE (131I) )
     Route: 065
  9. ZOLEDRONIC ACID [Concomitant]
     Active Substance: ZOLEDRONIC ACID
     Indication: Hypercalcaemia
     Dosage: UNK
     Route: 065

REACTIONS (1)
  - Hyperthyroidism [Recovering/Resolving]
